FAERS Safety Report 6194565-X (Version None)
Quarter: 2009Q2

REPORT INFORMATION
  Report Type: 
  Country: None (occurrence: None)
  Receive Date: 20090519
  Receipt Date: 20090504
  Transmission Date: 20091009
  Serious: Yes (Hospitalization)
  Sender: FDA-Public Use
  Company Number: FR-ROCHE-595922

PATIENT
  Sex: Female

DRUGS (8)
  1. PEG-INTERFERON ALFA 2A (RO 25-8310) [Suspect]
     Route: 058
     Dates: start: 20080922
  2. RIBAVIRIN [Suspect]
     Dosage: 400 MG IN MORNING, AND 600 MG IN EVENING.
     Route: 048
     Dates: start: 20080922
  3. BLINDED VX-950 [Suspect]
     Route: 048
     Dates: start: 20080922
  4. LUTERAN [Concomitant]
     Indication: CONTRACEPTION
     Route: 048
     Dates: start: 20030101
  5. MYCOSTER [Concomitant]
     Route: 061
     Dates: start: 20081006
  6. XYZAL [Concomitant]
     Indication: PRURITUS
     Route: 048
     Dates: start: 20080929, end: 20081013
  7. DEXERYL [Concomitant]
     Indication: PRURITUS
     Route: 061
     Dates: start: 20080923
  8. DOLIPRANE [Concomitant]
     Route: 048
     Dates: start: 20080922

REACTIONS (1)
  - METRORRHAGIA [None]
